FAERS Safety Report 5296395-X (Version None)
Quarter: 2007Q2

REPORT INFORMATION
  Report Type: 
  Country: None (occurrence: None)
  Receive Date: 20070413
  Receipt Date: 20070404
  Transmission Date: 20071010
  Serious: Yes (Death, Hospitalization)
  Sender: FDA-Public Use
  Company Number: NL-ROCHE-488944

PATIENT
  Age: 51 Year
  Sex: Male

DRUGS (10)
  1. CAPECITABINE [Suspect]
     Indication: COLORECTAL CANCER
     Dosage: GIVEN ON DAYS 1 - 14  EVERY 3 WEEKS.
     Route: 048
     Dates: start: 20051213, end: 20060502
  2. CAPECITABINE [Suspect]
     Dosage: AS OF CYCLE 7 ONWARDS.
     Route: 048
  3. BEVACIZUMAB [Suspect]
     Dosage: GIVEN ON DAY 1.
     Route: 042
     Dates: start: 20051213
  4. BEVACIZUMAB [Suspect]
     Dosage: GIVEN ON DAY 1. DOSE FORM REPORTED AS INFUSION.
     Route: 042
     Dates: start: 20060502, end: 20060502
  5. OXALIPLATIN [Suspect]
     Indication: COLORECTAL CANCER
     Dosage: GIVEN ON DAY 1 DURING 6 CYCLES.
     Route: 042
     Dates: start: 20051213
  6. OXALIPLATIN [Suspect]
     Dosage: GIVEN ON DAY 1 DURING 6 CYCLES.
     Route: 042
     Dates: start: 20060411, end: 20060411
  7. CETUXIMAB [Suspect]
     Indication: COLORECTAL CANCER
     Dosage: LOADING DOSE ON DAY 1.
     Route: 042
     Dates: start: 20061213
  8. CETUXIMAB [Suspect]
     Dosage: GIVEN ON DAYS 1, 8 AND 15 EVERY 3 WEEKS. 400 MG/M2 LOADING DOSE ON DAY 1.
     Route: 042
     Dates: start: 20051220, end: 20060502
  9. ZANTAC [Concomitant]
  10. CALCICHEW [Concomitant]

REACTIONS (6)
  - ACUTE HEPATIC FAILURE [None]
  - CARDIAC FAILURE [None]
  - DYSPNOEA [None]
  - FATIGUE [None]
  - MALAISE [None]
  - SEPSIS [None]
